FAERS Safety Report 9630981 (Version 1)
Quarter: 2013Q4

REPORT INFORMATION
  Report Type: Spontaneous
  Country: US (occurrence: None)
  Receive Date: 20131016
  Receipt Date: 20131016
  Transmission Date: 20140711
  Serious: Yes (Other)
  Sender: FDA-Public Use
  Company Number: None

PATIENT
  Age: 65 Year
  Sex: Male
  Weight: 99.79 kg

DRUGS (8)
  1. CHLORHEXIDINE GLUCONATE 0.12% ORAL RINSE USP XTTRIUM LABORATORIES [Suspect]
     Indication: LACERATION
     Dosage: 0.12%?15 ML?TWICE A DAY?RINSE MOUTH, SPIT OUT
     Dates: start: 20130912, end: 20130920
  2. ZESTRIL [Concomitant]
  3. HYDROCHLOROTHIAZIDE [Concomitant]
  4. METOPROLOL ER [Concomitant]
  5. FLUTICASONE PROPIONATE [Concomitant]
  6. SIMVASTATIN [Concomitant]
  7. MULTIVITAMIN [Concomitant]
  8. LOW DOSE ASPIRIN [Suspect]

REACTIONS (2)
  - Petechiae [None]
  - Anxiety [None]
